FAERS Safety Report 24356355 (Version 2)
Quarter: 2025Q1

REPORT INFORMATION
  Report Type: Spontaneous
  Country: US (occurrence: US)
  Receive Date: 20240924
  Receipt Date: 20250227
  Transmission Date: 20250408
  Serious: No
  Sender: TAKEDA
  Company Number: US-TAKEDA-2024TUS093470

PATIENT
  Sex: Male

DRUGS (2)
  1. ENTYVIO [Suspect]
     Active Substance: VEDOLIZUMAB
     Indication: Colitis ulcerative
  2. ENTYVIO [Suspect]
     Active Substance: VEDOLIZUMAB
     Dates: start: 20250220, end: 20250220

REACTIONS (3)
  - Suspected COVID-19 [Unknown]
  - Feeling hot [Unknown]
  - Nausea [Unknown]
